FAERS Safety Report 12146267 (Version 1)
Quarter: 2016Q1

REPORT INFORMATION
  Report Type: Spontaneous
  Country: NL (occurrence: NL)
  Receive Date: 20160304
  Receipt Date: 20160304
  Transmission Date: 20160526
  Serious: Yes (Life-Threatening, Hospitalization)
  Sender: FDA-Public Use
  Company Number: NL-CONCORDIA PHARMACEUTICALS INC.-CO-PL-NL-2016-083

PATIENT
  Age: 55 Year
  Sex: Female

DRUGS (13)
  1. GEMFIBROZIL. [Concomitant]
     Active Substance: GEMFIBROZIL
  2. PAROXETINE [Concomitant]
     Active Substance: PAROXETINE\PAROXETINE HYDROCHLORIDE
  3. PLAQUENIL [Suspect]
     Active Substance: HYDROXYCHLOROQUINE SULFATE
     Indication: PSORIATIC ARTHROPATHY
     Route: 048
     Dates: start: 2006, end: 20151026
  4. ETORICOXIB [Concomitant]
     Active Substance: ETORICOXIB
  5. MELOXICAM. [Concomitant]
     Active Substance: MELOXICAM
  6. SULFASALAZINE. [Concomitant]
     Active Substance: SULFASALAZINE
  7. DESLORATADINE. [Concomitant]
     Active Substance: DESLORATADINE
  8. NADROPARIN CALCIUM [Concomitant]
     Active Substance: NADROPARIN CALCIUM
  9. METOPROLOL SUCCINATE. [Concomitant]
     Active Substance: METOPROLOL SUCCINATE
  10. HYDROCHLOROTHIAZIDE. [Concomitant]
     Active Substance: HYDROCHLOROTHIAZIDE
  11. BUTRANS [Concomitant]
     Active Substance: BUPRENORPHINE
  12. OMEPRAZOLE. [Concomitant]
     Active Substance: OMEPRAZOLE
  13. PARACETAMOL [Concomitant]
     Active Substance: ACETAMINOPHEN

REACTIONS (4)
  - Cardiomyopathy [None]
  - Atrioventricular block complete [None]
  - Cardiac arrest [None]
  - Ventricular tachycardia [None]

NARRATIVE: CASE EVENT DATE: 20151022
